FAERS Safety Report 16340385 (Version 1)
Quarter: 2019Q2

REPORT INFORMATION
  Report Type: Spontaneous
  Country: US (occurrence: US)
  Receive Date: 20190522
  Receipt Date: 20190522
  Transmission Date: 20190711
  Serious: Yes (Death)
  Sender: FDA-Public Use
  Company Number: US-SUN PHARMACEUTICAL INDUSTRIES LTD-2019R1-208405

PATIENT
  Age: 15 Year
  Sex: Female

DRUGS (4)
  1. CYCLOPHOSPHAMIDE. [Suspect]
     Active Substance: CYCLOPHOSPHAMIDE
     Indication: ANTI-GLOMERULAR BASEMENT MEMBRANE ANTIBODY POSITIVE
     Dosage: UNK
     Route: 065
  2. METHYLPREDNISOLONE. [Suspect]
     Active Substance: METHYLPREDNISOLONE
     Indication: ANTI-GLOMERULAR BASEMENT MEMBRANE ANTIBODY POSITIVE
     Dosage: UNK
     Route: 042
  3. PREDNISONE. [Suspect]
     Active Substance: PREDNISONE
     Indication: ANTI-GLOMERULAR BASEMENT MEMBRANE ANTIBODY POSITIVE
     Route: 042
  4. RITUXIMAB. [Suspect]
     Active Substance: RITUXIMAB
     Indication: ANTI-GLOMERULAR BASEMENT MEMBRANE ANTIBODY POSITIVE
     Dosage: UNK
     Route: 065

REACTIONS (7)
  - Hypertensive encephalopathy [Fatal]
  - Status epilepticus [Fatal]
  - Respiratory disorder [Fatal]
  - Cytomegalovirus viraemia [Fatal]
  - End stage renal disease [Fatal]
  - Encephalitis [Fatal]
  - Disease progression [Fatal]
